FAERS Safety Report 19381322 (Version 3)
Quarter: 2022Q3

REPORT INFORMATION
  Report Type: Spontaneous
  Country: SE (occurrence: SE)
  Receive Date: 20210607
  Receipt Date: 20220723
  Transmission Date: 20221026
  Serious: Yes (Death)
  Sender: FDA-Public Use
  Company Number: None

PATIENT
  Age: 76 Year
  Sex: Male
  Weight: 80 kg

DRUGS (17)
  1. GEMCITABINE [Suspect]
     Active Substance: GEMCITABINE
     Indication: Product used for unknown indication
     Dosage: 1824 MG, 1000 MG/M2
     Dates: start: 20210303
  2. TOZINAMERAN [Suspect]
     Active Substance: TOZINAMERAN
     Indication: Product used for unknown indication
     Dosage: DOS 2, CONCENTRATE FOR SOLUTION FOR INJECTION, DISPERSION
     Dates: start: 20210304, end: 20210304
  3. SERTRALINE [Concomitant]
     Active Substance: SERTRALINE HYDROCHLORIDE
     Dates: start: 20200522
  4. BISOPROLOL [Concomitant]
     Active Substance: BISOPROLOL
     Dosage: 2.5 MG
     Dates: start: 20200313
  5. INSULIN HUMAN [Concomitant]
     Active Substance: INSULIN HUMAN
     Dosage: 0+28+0+8,  100 IU / ML SOLUTION FOR INJECTION, SUSPENSION IN A PREFILLED
     Dates: start: 20200506
  6. ESOMEPRAZOLE [Concomitant]
     Active Substance: ESOMEPRAZOLE
     Dosage: ENTERO-CAPSULE, HARD
     Dates: start: 20200520
  7. ATORVASTATIN [Concomitant]
     Active Substance: ATORVASTATIN
     Dates: start: 20200522
  8. ONDANSETRON HYDROCHLORIDE [Concomitant]
     Active Substance: ONDANSETRON HYDROCHLORIDE
     Dosage: 8 MG 1 IN THE MORNING DAY 1 OF CYTOSTATIC TREATMENT
     Dates: start: 20210127
  9. BETAMETHASONE [Concomitant]
     Active Substance: BETAMETHASONE
     Dosage: 8 TABLETS ON DAY 1 OF CYSTOSTATIC TREATMENT
     Dates: start: 20210127
  10. Furix [Concomitant]
     Dates: start: 20200522
  11. DIAZEPAM [Concomitant]
     Active Substance: DIAZEPAM
     Dosage: 1 TABLET AS REQUIRED FOR THE NIGHT
     Dates: start: 20210127
  12. ALLOPURINOL [Concomitant]
     Active Substance: ALLOPURINOL
     Dates: start: 20200506
  13. ASPIRIN [Concomitant]
     Active Substance: ASPIRIN
     Dates: start: 20200522
  14. GEMCITABINE [Suspect]
     Active Substance: GEMCITABINE
     Indication: Product used for unknown indication
     Dosage: 1824 MG, 1000 MG/M2
     Dates: start: 20210217
  15. GEMCITABINE [Suspect]
     Active Substance: GEMCITABINE
     Indication: Product used for unknown indication
     Dosage: 1824 MG, 1000 MG/M2
     Dates: start: 20210203
  16. GEMCITABINE [Suspect]
     Active Substance: GEMCITABINE
     Indication: Pancreatic carcinoma metastatic
     Dosage: 1824 MG, 1000 MG/M2
     Dates: start: 20210310
  17. TOZINAMERAN [Suspect]
     Active Substance: TOZINAMERAN
     Indication: Product used for unknown indication
     Dosage: DOS 1
     Dates: start: 20210205

REACTIONS (3)
  - Thrombocytopenia [Fatal]
  - Hepatic failure [Fatal]
  - Renal failure [Fatal]

NARRATIVE: CASE EVENT DATE: 20210316
